FAERS Safety Report 21285900 (Version 1)
Quarter: 2022Q3

REPORT INFORMATION
  Report Type: Spontaneous
  Country: DE (occurrence: DE)
  Receive Date: 20220902
  Receipt Date: 20220902
  Transmission Date: 20221027
  Serious: Yes (Hospitalization, Other)
  Sender: FDA-Public Use
  Company Number: DE-TEVA-2022-DE-2068612

PATIENT
  Age: 76 Year
  Sex: Female

DRUGS (3)
  1. SULFAMETHOXAZOLE\TRIMETHOPRIM [Suspect]
     Active Substance: SULFAMETHOXAZOLE\TRIMETHOPRIM
     Indication: Cystitis
     Dosage: 1920 MILLIGRAM DAILY;
     Route: 065
     Dates: start: 202207, end: 202207
  2. ACETYLCYSTEINE [Concomitant]
     Active Substance: ACETYLCYSTEINE
     Indication: Product used for unknown indication
  3. ASPIRIN [Concomitant]
     Active Substance: ASPIRIN
     Indication: Product used for unknown indication

REACTIONS (9)
  - Pulmonary congestion [Unknown]
  - Suffocation feeling [Unknown]
  - Pulmonary pain [Recovering/Resolving]
  - Rash [Recovering/Resolving]
  - Breath sounds abnormal [Unknown]
  - Cough [Unknown]
  - Vomiting [Unknown]
  - Vision blurred [Unknown]
  - Herpes zoster [Unknown]

NARRATIVE: CASE EVENT DATE: 20220701
